FAERS Safety Report 10192942 (Version 2)
Quarter: 2014Q2

REPORT INFORMATION
  Report Type: Spontaneous
  Country: DE (occurrence: DE)
  Receive Date: 20140523
  Receipt Date: 20140523
  Transmission Date: 20141212
  Serious: Yes (Hospitalization)
  Sender: FDA-Public Use
  Company Number: US-ASTRAZENECA-2014SE17187

PATIENT
  Age: 1 Year
  Sex: Male
  Weight: 8.6 kg

DRUGS (15)
  1. SYNAGIS [Suspect]
     Indication: PREMATURE BABY
     Dosage: 50MG (CH 33952TFX), 100MG (CH 33962TFX)
     Route: 030
     Dates: start: 20131127, end: 20131127
  2. SYNAGIS [Suspect]
     Indication: BRONCHOPULMONARY DYSPLASIA
     Dosage: 50MG (CH 33952TFX), 100MG (CH 33962TFX)
     Route: 030
     Dates: start: 20131127, end: 20131127
  3. SYNAGIS [Suspect]
     Indication: HEART DISEASE CONGENITAL
     Dosage: 50MG (CH 33952TFX), 100MG (CH 33962TFX)
     Route: 030
     Dates: start: 20131127, end: 20131127
  4. SYNAGIS [Suspect]
     Indication: PREMATURE BABY
     Dosage: 100MG (CH 32884TF), 50MG (CH 34188TF)
     Route: 030
     Dates: start: 20131230, end: 20131230
  5. SYNAGIS [Suspect]
     Indication: BRONCHOPULMONARY DYSPLASIA
     Dosage: 100MG (CH 32884TF), 50MG (CH 34188TF)
     Route: 030
     Dates: start: 20131230, end: 20131230
  6. SYNAGIS [Suspect]
     Indication: HEART DISEASE CONGENITAL
     Dosage: 100MG (CH 32884TF), 50MG (CH 34188TF)
     Route: 030
     Dates: start: 20131230, end: 20131230
  7. SYNAGIS [Suspect]
     Indication: PREMATURE BABY
     Dosage: 100MG, 50MG
     Route: 030
     Dates: start: 20140130, end: 20140130
  8. SYNAGIS [Suspect]
     Indication: BRONCHOPULMONARY DYSPLASIA
     Dosage: 100MG, 50MG
     Route: 030
     Dates: start: 20140130, end: 20140130
  9. SYNAGIS [Suspect]
     Indication: HEART DISEASE CONGENITAL
     Dosage: 100MG, 50MG
     Route: 030
     Dates: start: 20140130, end: 20140130
  10. SYNAGIS [Suspect]
     Indication: PREMATURE BABY
     Dosage: 100MG (CH 36422TFX), 50MG (CH 36412TFX)
     Route: 030
     Dates: start: 20140226, end: 20140226
  11. SYNAGIS [Suspect]
     Indication: BRONCHOPULMONARY DYSPLASIA
     Dosage: 100MG (CH 36422TFX), 50MG (CH 36412TFX)
     Route: 030
     Dates: start: 20140226, end: 20140226
  12. SYNAGIS [Suspect]
     Indication: HEART DISEASE CONGENITAL
     Dosage: 100MG (CH 36422TFX), 50MG (CH 36412TFX)
     Route: 030
     Dates: start: 20140226, end: 20140226
  13. SYNAGIS [Suspect]
     Indication: PREMATURE BABY
     Route: 030
     Dates: start: 20140425, end: 20140425
  14. SYNAGIS [Suspect]
     Indication: BRONCHOPULMONARY DYSPLASIA
     Route: 030
     Dates: start: 20140425, end: 20140425
  15. SYNAGIS [Suspect]
     Indication: HEART DISEASE CONGENITAL
     Route: 030
     Dates: start: 20140425, end: 20140425

REACTIONS (3)
  - Respiratory failure [Recovered/Resolved]
  - Respiratory syncytial virus infection [Recovered/Resolved]
  - Pneumonia respiratory syncytial viral [Recovering/Resolving]
